FAERS Safety Report 18482190 (Version 1)
Quarter: 2020Q4

REPORT INFORMATION
  Report Type: Spontaneous
  Country: US (occurrence: US)
  Receive Date: 20201110
  Receipt Date: 20201110
  Transmission Date: 20210114
  Serious: No
  Sender: FDA-Public Use
  Company Number: US-AMGEN-USASP2020179619

PATIENT
  Age: 47 Year
  Sex: Male

DRUGS (5)
  1. OTEZLA [Suspect]
     Active Substance: APREMILAST
     Indication: PSORIASIS
     Dosage: 30 MILLIGRAM, BID
     Route: 048
     Dates: start: 20200318
  2. LISINOPRIL. [Concomitant]
     Active Substance: LISINOPRIL
     Dosage: UNK(5 MG)
     Dates: start: 20201015, end: 2020
  3. ALBUTEROL HFA [Concomitant]
     Active Substance: ALBUTEROL SULFATE
     Dosage: UNK
     Dates: start: 20201007, end: 2020
  4. CEFUROXIME. [Concomitant]
     Active Substance: CEFUROXIME
     Dosage: UNK (500 MG)
  5. PROMETH WITH CODEINE [Concomitant]
     Active Substance: CODEINE PHOSPHATE\PROMETHAZINE HYDROCHLORIDE
     Dosage: UNK

REACTIONS (1)
  - Nausea [Not Recovered/Not Resolved]

NARRATIVE: CASE EVENT DATE: 20201103
